FAERS Safety Report 21946161 (Version 1)
Quarter: 2023Q1

REPORT INFORMATION
  Report Type: Spontaneous
  Country: US (occurrence: US)
  Receive Date: 20230202
  Receipt Date: 20230202
  Transmission Date: 20230417
  Serious: No
  Sender: FDA-Public Use
  Company Number: US-ADVANZ PHARMA-202111008043

PATIENT

DRUGS (1)
  1. ATROPINE SULFATE\HYOSCYAMINE SULFATE\PHENOBARBITAL\SCOPOLAMINE HYDROBR [Suspect]
     Active Substance: ATROPINE SULFATE\HYOSCYAMINE SULFATE\PHENOBARBITAL\SCOPOLAMINE HYDROBROMIDE
     Indication: Irritable bowel syndrome
     Dosage: UNK, (DONNATAL)

REACTIONS (2)
  - Inability to afford medication [Unknown]
  - Product dose omission issue [Unknown]
